FAERS Safety Report 6006826-5 (Version None)
Quarter: 2008Q4

REPORT INFORMATION
  Report Type: 
  Country: None (occurrence: None)
  Receive Date: 20081217
  Receipt Date: 20080114
  Transmission Date: 20090506
  Serious: No
  Sender: FDA-Public Use
  Company Number: US-ASTRAZENECA-2007UW24287

PATIENT
  Age: 87 Year
  Sex: Female
  Weight: 65.3 kg

DRUGS (4)
  1. CRESTOR [Suspect]
     Indication: BLOOD CHOLESTEROL INCREASED
     Route: 048
     Dates: start: 20071004
  2. NORVASC [Concomitant]
  3. GRIANGIENE [Concomitant]
  4. FOLIC ACID [Concomitant]

REACTIONS (3)
  - GAIT DISTURBANCE [None]
  - MYALGIA [None]
  - PAIN [None]
